FAERS Safety Report 24874135 (Version 2)
Quarter: 2025Q1

REPORT INFORMATION
  Report Type: Spontaneous
  Country: GB (occurrence: GB)
  Receive Date: 20250122
  Receipt Date: 20250205
  Transmission Date: 20250409
  Serious: Yes (Other)
  Sender: PERRIGO
  Company Number: None

PATIENT
  Age: 55 Year
  Sex: Female
  Weight: 56 kg

DRUGS (10)
  1. IBUPROFEN [Suspect]
     Active Substance: IBUPROFEN
     Indication: Ill-defined disorder
     Route: 048
  2. SERTRALINE [Concomitant]
     Active Substance: SERTRALINE HYDROCHLORIDE
     Indication: Ill-defined disorder
     Dosage: 1 DF QD
     Route: 065
     Dates: start: 20241015, end: 20241017
  3. PROGESTERONE [Concomitant]
     Active Substance: PROGESTERONE
     Indication: Ill-defined disorder
     Dosage: 1 DF, QD (TAKE 1 CAPSULE ONCE DAILY AT BEDTIME ON DAYS 1 TO 25 OF EACH 28 DAY CYCLE. IMPORTANT FOR E
     Route: 065
     Dates: start: 20241223
  4. ESTRADIOL [Concomitant]
     Active Substance: ESTRADIOL
     Indication: Ill-defined disorder
     Dosage: 2DF, QD (APPLY TWO PUMPS ONCE DAILY)
     Route: 065
     Dates: start: 20241223
  5. METHYLPREDNISOLONE [Concomitant]
     Active Substance: METHYLPREDNISOLONE
     Indication: Ill-defined disorder
     Dosage: USE AS DIRECTED
     Route: 065
     Dates: start: 20241214, end: 20241215
  6. NASACORT [Concomitant]
     Active Substance: TRIAMCINOLONE ACETONIDE
     Indication: Ill-defined disorder
     Route: 065
     Dates: start: 20200220
  7. NARATRIPTAN [Concomitant]
     Active Substance: NARATRIPTAN HYDROCHLORIDE
     Indication: Ill-defined disorder
     Route: 065
     Dates: start: 20220601
  8. ZOLMITRIPTAN [Concomitant]
     Active Substance: ZOLMITRIPTAN
     Indication: Ill-defined disorder
     Route: 065
     Dates: start: 20220601
  9. NORTRIPTYLINE [Concomitant]
     Active Substance: NORTRIPTYLINE
     Indication: Ill-defined disorder
     Route: 065
     Dates: start: 20240324
  10. ESOMEPRAZOLE [Concomitant]
     Active Substance: ESOMEPRAZOLE
     Indication: Ill-defined disorder
     Dosage: 1 DF QD
     Route: 065
     Dates: start: 20240827

REACTIONS (1)
  - Gastritis [Not Recovered/Not Resolved]
